FAERS Safety Report 4979550-5 (Version None)
Quarter: 2006Q2

REPORT INFORMATION
  Report Type: 
  Country: None (occurrence: None)
  Receive Date: 20060418
  Receipt Date: 20060329
  Transmission Date: 20061013
  Serious: Yes (Other)
  Sender: FDA-Public Use
  Company Number: AU200602004160

PATIENT
  Age: 90 Year
  Sex: Female

DRUGS (3)
  1. EVISTA [Suspect]
     Indication: OSTEOPOROSIS POSTMENOPAUSAL
     Dosage: 60 MG, DAILY (1/D), ORAL
     Route: 048
     Dates: start: 19990101, end: 20060201
  2. AVANZA (MIRTAZAPINE) [Concomitant]
  3. STILNOX /FRA/ (ZOLPIDEM) [Concomitant]

REACTIONS (1)
  - FEMORAL NECK FRACTURE [None]
